FAERS Safety Report 7735539-4 (Version None)
Quarter: 2011Q3

REPORT INFORMATION
  Report Type: 
  Country: None (occurrence: None)
  Receive Date: 20110907
  Receipt Date: 20110829
  Transmission Date: 20111222
  Serious: Yes (Hospitalization)
  Sender: FDA-Public Use
  Company Number: US-ASTRAZENECA-2010SE32303

PATIENT
  Age: 90 Year
  Sex: Female

DRUGS (19)
  1. TOPROL-XL [Suspect]
     Route: 048
  2. XANAX [Concomitant]
  3. MILK OF MAGNESIA TAB [Concomitant]
  4. PROZAC [Concomitant]
  5. LASIX [Concomitant]
  6. IMDUR [Concomitant]
  7. THERAGRAM [Concomitant]
     Dosage: 1 AM
  8. COLACE [Concomitant]
  9. POTASSIUM [Concomitant]
  10. LISINOPRIL [Concomitant]
  11. NITROGLYCERIN [Concomitant]
  12. CRESTOR [Suspect]
     Route: 048
  13. ASPIRIN [Concomitant]
  14. MAALOX [Concomitant]
     Dosage: 1 TAB AT AM AND PM
  15. NEXIUM [Suspect]
     Route: 048
  16. PRILOSEC [Concomitant]
     Dosage: 40 MG 1 AM AND 1 PM
  17. LIPITOR [Concomitant]
  18. COREG [Concomitant]
  19. VICKS VAPOR RUB [Concomitant]

REACTIONS (12)
  - HIATUS HERNIA [None]
  - CEREBROVASCULAR ACCIDENT [None]
  - CARDIAC FAILURE CONGESTIVE [None]
  - BLOOD PRESSURE DIASTOLIC INCREASED [None]
  - NASOPHARYNGITIS [None]
  - THROMBOPHLEBITIS [None]
  - DRUG DOSE OMISSION [None]
  - CARDIAC DISORDER [None]
  - HYPERTENSION [None]
  - SINUS DISORDER [None]
  - ULCER [None]
  - OESOPHAGEAL DISORDER [None]
